FAERS Safety Report 8446834-8 (Version None)
Quarter: 2012Q2

REPORT INFORMATION
  Report Type: 
  Country: None (occurrence: None)
  Receive Date: 20120619
  Receipt Date: 20120611
  Transmission Date: 20120825
  Serious: No
  Sender: FDA-Public Use
  Company Number: US-BIOGENIDEC-2012BI020714

PATIENT
  Sex: Female

DRUGS (4)
  1. PRISTIQ [Concomitant]
     Indication: DEPRESSION
  2. AVONEX [Suspect]
     Route: 030
     Dates: start: 20090116, end: 20110101
  3. AVONEX [Suspect]
     Indication: MULTIPLE SCLEROSIS
     Route: 030
     Dates: start: 20050511, end: 20071101
  4. DEPAKOTE [Concomitant]
     Indication: BIPOLAR DISORDER

REACTIONS (4)
  - MUSCULOSKELETAL DISORDER [None]
  - FATIGUE [None]
  - MALAISE [None]
  - DRUG EFFECT DECREASED [None]
